FAERS Safety Report 9091348 (Version 1)
Quarter: 2013Q1

REPORT INFORMATION
  Report Type: Spontaneous
  Country: US (occurrence: US)
  Receive Date: 20130131
  Receipt Date: 20130131
  Transmission Date: 20140127
  Serious: Yes (Other)
  Sender: FDA-Public Use
  Company Number: US-JNJFOC-20130111492

PATIENT
  Sex: 0

DRUGS (3)
  1. INFLIXIMAB, RECOMBINANT [Suspect]
     Indication: CROHN^S DISEASE
     Route: 042
  2. HUMIRA [Suspect]
     Indication: PRODUCT USED FOR UNKNOWN INDICATION
     Route: 065
  3. OTHER THERAPEUTIC PRODUCTS [Suspect]
     Indication: PRODUCT USED FOR UNKNOWN INDICATION
     Route: 065

REACTIONS (9)
  - Anaphylactic reaction [Unknown]
  - Short-bowel syndrome [Unknown]
  - Intestinal resection [Unknown]
  - Diarrhoea [Unknown]
  - Perianal erythema [Unknown]
  - Rectal discharge [Unknown]
  - Drug ineffective [Unknown]
  - Crohn^s disease [Unknown]
  - Excoriation [Unknown]
